FAERS Safety Report 5134443-8 (Version None)
Quarter: 2006Q4

REPORT INFORMATION
  Report Type: 
  Country: None (occurrence: None)
  Receive Date: 20061023
  Receipt Date: 20061023
  Transmission Date: 20070319
  Serious: No
  Sender: FDA-Public Use
  Company Number: None

PATIENT
  Age: 36 Year
  Sex: Female
  Weight: 65.7716 kg

DRUGS (3)
  1. ZICAM [Suspect]
     Indication: NASAL CONGESTION
     Dosage: NASAL; PO
     Route: 045
     Dates: start: 20060706, end: 20060910
  2. ZICAM [Suspect]
     Indication: NASOPHARYNGITIS
     Dosage: NASAL; PO
     Route: 045
     Dates: start: 20060706, end: 20060910
  3. ZICAM [Suspect]
     Indication: PHARYNGOLARYNGEAL PAIN
     Dosage: NASAL; PO
     Route: 045
     Dates: start: 20060706, end: 20060910

REACTIONS (2)
  - AGEUSIA [None]
  - ANOSMIA [None]
